FAERS Safety Report 11482322 (Version 2)
Quarter: 2015Q3

REPORT INFORMATION
  Report Type: Report from Study
  Country: US (occurrence: US)
  Receive Date: 20150909
  Receipt Date: 20150916
  Transmission Date: 20151125
  Serious: No
  Sender: FDA-Public Use
  Company Number: US-AMGEN-USASP2015092274

PATIENT
  Age: 65 Year
  Sex: Female

DRUGS (1)
  1. ENBREL [Suspect]
     Active Substance: ETANERCEPT
     Indication: RHEUMATOID ARTHRITIS
     Dosage: 50 MG, 2 TIMES/WK
     Route: 065

REACTIONS (7)
  - Echocardiogram abnormal [Unknown]
  - Agitation [Unknown]
  - Hypertension [Unknown]
  - Electrocardiogram abnormal [Unknown]
  - Cardiac stress test abnormal [Unknown]
  - Heart rate increased [Unknown]
  - Dyspnoea [Unknown]
